FAERS Safety Report 6575447-8 (Version None)
Quarter: 2010Q1

REPORT INFORMATION
  Report Type: 
  Country: None (occurrence: None)
  Receive Date: 20100209
  Receipt Date: 20100204
  Transmission Date: 20100710
  Serious: Yes (Life-Threatening)
  Sender: FDA-Public Use
  Company Number: CN-JNJFOC-20100203478

PATIENT
  Age: 82 Year
  Sex: Female

DRUGS (1)
  1. SPORANOX [Suspect]
     Indication: FUNGAL INFECTION
     Route: 042

REACTIONS (3)
  - HEART RATE DECREASED [None]
  - HYPERSENSITIVITY [None]
  - PULMONARY OEDEMA [None]
